FAERS Safety Report 13095258 (Version 1)
Quarter: 2017Q1

REPORT INFORMATION
  Report Type: Spontaneous
  Country: US (occurrence: US)
  Receive Date: 20170107
  Receipt Date: 20170107
  Transmission Date: 20170428
  Serious: No
  Sender: FDA-Public Use
  Company Number: US-DRREDDYS-DRL/USA/16/0078906

PATIENT
  Age: 62 Year
  Sex: Male
  Weight: 109.3 kg

DRUGS (1)
  1. HABITROL [Suspect]
     Active Substance: NICOTINE
     Indication: SMOKING CESSATION THERAPY
     Route: 061
     Dates: start: 201504

REACTIONS (2)
  - Skin burning sensation [Recovering/Resolving]
  - Nipple pain [Recovering/Resolving]

NARRATIVE: CASE EVENT DATE: 201604
